FAERS Safety Report 7757482-7 (Version None)
Quarter: 2011Q3

REPORT INFORMATION
  Report Type: 
  Country: None (occurrence: None)
  Receive Date: 20110916
  Receipt Date: 20110912
  Transmission Date: 20111222
  Serious: Yes (Death, Hospitalization)
  Sender: FDA-Public Use
  Company Number: US-B.I. PHARMACEUTICALS,INC./RIDGEFIELD-2011-BP-18988BP

PATIENT
  Age: 80 Year
  Sex: Female
  Weight: 80.4 kg

DRUGS (6)
  1. K-CHLOR [Concomitant]
  2. ARICEPT [Concomitant]
     Dosage: 50 MG
  3. PRADAXA [Suspect]
     Indication: ATRIAL FIBRILLATION
     Dosage: 300 MG
     Route: 048
     Dates: start: 20110501, end: 20110628
  4. DIGOXIN [Concomitant]
  5. FENANTYL PATCH [Concomitant]
  6. DEPAKOTE CR [Concomitant]

REACTIONS (4)
  - GASTROINTESTINAL HAEMORRHAGE [None]
  - CARDIAC FAILURE CONGESTIVE [None]
  - GASTRIC ULCER [None]
  - ANAEMIA [None]
